FAERS Safety Report 5002857-2 (Version None)
Quarter: 2006Q2

REPORT INFORMATION
  Report Type: 
  Country: None (occurrence: None)
  Receive Date: 20060516
  Receipt Date: 20060404
  Transmission Date: 20061013
  Serious: No
  Sender: FDA-Public Use
  Company Number: 2006CG00633

PATIENT
  Age: 93 Day
  Sex: Female
  Weight: 5.5 kg

DRUGS (4)
  1. MOPRAL [Suspect]
     Indication: GASTROOESOPHAGEAL REFLUX DISEASE
     Route: 048
     Dates: start: 20060314, end: 20060403
  2. MOPRAL [Suspect]
     Route: 048
     Dates: start: 20060404, end: 20060404
  3. URECHOLINE [Suspect]
     Indication: DYSKINESIA OESOPHAGEAL
     Route: 048
     Dates: start: 20060324
  4. POLYSILANE [Concomitant]

REACTIONS (5)
  - ALANINE AMINOTRANSFERASE INCREASED [None]
  - ASPARTATE AMINOTRANSFERASE INCREASED [None]
  - BLOOD ALKALINE PHOSPHATASE INCREASED [None]
  - BLOOD LACTATE DEHYDROGENASE INCREASED [None]
  - DYSKINESIA OESOPHAGEAL [None]
